FAERS Safety Report 23948556 (Version 1)
Quarter: 2024Q2

REPORT INFORMATION
  Report Type: Spontaneous
  Country: FR (occurrence: FR)
  Receive Date: 20240607
  Receipt Date: 20240607
  Transmission Date: 20240716
  Serious: Yes (Hospitalization)
  Sender: FDA-Public Use
  Company Number: FR-JNJFOC-20240589528

PATIENT
  Age: 76 Year
  Sex: Male

DRUGS (1)
  1. ERLEADA [Suspect]
     Active Substance: APALUTAMIDE
     Indication: Hormone-refractory prostate cancer
     Route: 048

REACTIONS (5)
  - General physical health deterioration [Unknown]
  - Fatigue [Unknown]
  - C-reactive protein increased [Unknown]
  - Lung disorder [Unknown]
  - Gastrointestinal disorder [Unknown]
